APPROVED DRUG PRODUCT: MORPHINE SULFATE
Active Ingredient: MORPHINE SULFATE
Strength: 30MG
Dosage Form/Route: CAPSULE, EXTENDED RELEASE;ORAL
Application: A202718 | Product #002
Applicant: TEVA PHARMACEUTICALS USA
Approved: Dec 29, 2014 | RLD: No | RS: No | Type: DISCN